FAERS Safety Report 18273651 (Version 6)
Quarter: 2020Q4

REPORT INFORMATION
  Report Type: Spontaneous
  Country: US (occurrence: US)
  Receive Date: 20200916
  Receipt Date: 20201211
  Transmission Date: 20210113
  Serious: No
  Sender: FDA-Public Use
  Company Number: US-VERTEX PHARMACEUTICALS-2020-018224

PATIENT
  Age: 9 Year
  Sex: Female
  Weight: 25 kg

DRUGS (15)
  1. TOBRAMYCIN. [Concomitant]
     Active Substance: TOBRAMYCIN
     Dosage: 300MG/5ML
  2. ZENPEP [Concomitant]
     Active Substance: PANCRELIPASE AMYLASE\PANCRELIPASE LIPASE\PANCRELIPASE PROTEASE
     Dosage: UNK
  3. SYMDEKO [Suspect]
     Active Substance: IVACAFTOR\TEZACAFTOR
     Indication: CYSTIC FIBROSIS
     Dosage: (TEZACAFTOR 50 MG/IVACAFTOR 75 MG)IN AM AND (IVACAFTOR 75 MG) IN THE PM, BID
     Route: 048
     Dates: start: 20200228
  4. CAYSTON [Concomitant]
     Active Substance: AZTREONAM
     Dosage: 75 MG, TID
     Route: 055
  5. LANSOPRAZOLE. [Concomitant]
     Active Substance: LANSOPRAZOLE
     Dosage: UNK
  6. VITAMIN D3 [Concomitant]
     Active Substance: CHOLECALCIFEROL
     Dosage: 10000 IU
  7. MOTRIN CHILDREN [Concomitant]
     Active Substance: IBUPROFEN
     Dosage: UNK
  8. RELIZORB [Concomitant]
     Dosage: UNK
  9. SYMDEKO [Suspect]
     Active Substance: IVACAFTOR\TEZACAFTOR
     Dosage: TEZACAFTOR 50 MG/IVACAFTOR 75 MG)IN AM
     Route: 048
     Dates: start: 20200812, end: 20201027
  10. SODIUM CHLORIDE 0.9% [Concomitant]
     Active Substance: SODIUM CHLORIDE
     Dosage: UNK
     Route: 055
  11. TYLENOL [Concomitant]
     Active Substance: ACETAMINOPHEN
     Dosage: UNK
  12. PROAIR BRONQUIAL [Concomitant]
     Dosage: 90 MCG INHALER
  13. IPRATROPIUM/ALBUTEROL [Concomitant]
     Active Substance: ALBUTEROL\IPRATROPIUM
     Dosage: UNK
  14. ALLEGRA ALLERGY NON DROWSY [Concomitant]
     Dosage: 60 MG
  15. FLUORIDE [SODIUM FLUORIDE] [Concomitant]
     Active Substance: SODIUM FLUORIDE
     Dosage: 0.25 MG CHEWABLE TABLET
     Route: 048

REACTIONS (3)
  - Candida pneumonia [Recovered/Resolved]
  - Pneumonia bacterial [Recovered/Resolved]
  - Infective pulmonary exacerbation of cystic fibrosis [Recovered/Resolved]

NARRATIVE: CASE EVENT DATE: 202007
